FAERS Safety Report 21155721 (Version 1)
Quarter: 2022Q3

REPORT INFORMATION
  Report Type: Spontaneous
  Country: US (occurrence: None)
  Receive Date: 20220729
  Receipt Date: 20220729
  Transmission Date: 20221026
  Serious: No
  Sender: FDA-Public Use
  Company Number: None

PATIENT
  Sex: Female

DRUGS (6)
  1. VERZENIO [Suspect]
     Active Substance: ABEMACICLIB
     Indication: Breast cancer
     Dosage: 150MG TWICE A DAY ORAL
     Route: 048
     Dates: start: 202206
  2. AMIODARONE HCI [Concomitant]
  3. ELIQUIS [Concomitant]
     Active Substance: APIXABAN
  4. EXEMESTANE [Concomitant]
     Active Substance: EXEMESTANE
  5. FEBUXOSTAT [Concomitant]
     Active Substance: FEBUXOSTAT
  6. LEVOTHYROXINE [Concomitant]
     Active Substance: LEVOTHYROXINE

REACTIONS (1)
  - Myelosuppression [None]
